FAERS Safety Report 16109740 (Version 4)
Quarter: 2019Q2

REPORT INFORMATION
  Report Type: Report from Study
  Country: None (occurrence: TR)
  Receive Date: 20190325
  Receipt Date: 20190502
  Transmission Date: 20190711
  Serious: Yes (Hospitalization)
  Sender: FDA-Public Use
  Company Number: TR-ABBVIE-19S-161-2714613-00

PATIENT
  Age: 75 Year
  Sex: Male
  Weight: 85 kg

DRUGS (6)
  1. DUODOPA [Suspect]
     Active Substance: CARBIDOPA\LEVODOPA
     Route: 050
     Dates: start: 20190430
  2. PEXOLA ER [Concomitant]
     Indication: PARKINSON^S DISEASE
     Route: 048
     Dates: start: 20181218
  3. DUODOPA [Suspect]
     Active Substance: CARBIDOPA\LEVODOPA
     Indication: PARKINSON^S DISEASE
     Dosage: MD (ML):11.00 CD ML):5.30 ED (ML):2.00, INTERRUPTED
     Route: 050
     Dates: start: 20151125, end: 20190405
  4. DOPALEVO [Concomitant]
     Indication: PARKINSON^S DISEASE
     Route: 048
  5. DOPADEX SR [Concomitant]
     Indication: PARKINSON^S DISEASE
     Route: 048
     Dates: start: 20181218
  6. RIVOTRIL [Concomitant]
     Active Substance: CLONAZEPAM
     Indication: SLEEP DISORDER
     Dosage: 1X1/2
     Route: 048

REACTIONS (4)
  - Loss of consciousness [Recovered/Resolved]
  - Feeding disorder [Not Recovered/Not Resolved]
  - Lung infection [Recovered/Resolved]
  - Device occlusion [Recovered/Resolved]

NARRATIVE: CASE EVENT DATE: 20190323
